FAERS Safety Report 7344791-9 (Version None)
Quarter: 2011Q1

REPORT INFORMATION
  Report Type: 
  Country: None (occurrence: None)
  Receive Date: 20110228
  Receipt Date: 20110215
  Transmission Date: 20110831
  Serious: Yes (Other)
  Sender: FDA-Public Use
  Company Number: 1000017209

PATIENT
  Age: 25 Year
  Sex: Female
  Weight: 60 kg

DRUGS (3)
  1. ESCITALOPRAM [Suspect]
     Indication: MAJOR DEPRESSION
     Dosage: 10 MG (10 MG,1 IN 1 D),ORAL,  20 MG (20 MG, 1 IN 1 D),ORAL, 30 MG (30 MG, 1 IN 1 D) ORAL
     Dates: start: 20090901, end: 20090901
  2. ESCITALOPRAM [Suspect]
     Indication: MAJOR DEPRESSION
     Dosage: 10 MG (10 MG,1 IN 1 D),ORAL,  20 MG (20 MG, 1 IN 1 D),ORAL, 30 MG (30 MG, 1 IN 1 D) ORAL
     Dates: start: 20100901
  3. ESCITALOPRAM [Suspect]
     Indication: MAJOR DEPRESSION
     Dosage: 10 MG (10 MG,1 IN 1 D),ORAL,  20 MG (20 MG, 1 IN 1 D),ORAL, 30 MG (30 MG, 1 IN 1 D) ORAL
     Dates: start: 20090901, end: 20100901

REACTIONS (4)
  - TONGUE SPASM [None]
  - CHEST DISCOMFORT [None]
  - OVERDOSE [None]
  - OROPHARYNGEAL SPASM [None]
